FAERS Safety Report 7746260-0 (Version None)
Quarter: 2011Q3

REPORT INFORMATION
  Report Type: 
  Country: None (occurrence: None)
  Receive Date: 20110913
  Receipt Date: 20110831
  Transmission Date: 20111222
  Serious: Yes (Other)
  Sender: FDA-Public Use
  Company Number: DE-ROCHE-801907

PATIENT
  Sex: Female

DRUGS (1)
  1. HERCEPTIN [Suspect]
     Indication: METASTATIC GASTRIC CANCER
     Route: 042
     Dates: start: 20090701, end: 20110501

REACTIONS (3)
  - NEUROMYELITIS OPTICA [None]
  - BLINDNESS [None]
  - METASTASES TO CENTRAL NERVOUS SYSTEM [None]
